FAERS Safety Report 14690245 (Version 2)
Quarter: 2018Q2

REPORT INFORMATION
  Report Type: Spontaneous
  Country: ES (occurrence: ES)
  Receive Date: 20180328
  Receipt Date: 20180507
  Transmission Date: 20180711
  Serious: Yes (Hospitalization)
  Sender: FDA-Public Use
  Company Number: ES-TEVA-2018-ES-871931

PATIENT
  Age: 75 Year
  Sex: Female

DRUGS (4)
  1. DOXORUBICIN 202A [Suspect]
     Active Substance: DOXORUBICIN
     Indication: B-CELL LYMPHOMA
     Dosage: 85 MG EVERY 21 DAYS
     Route: 042
     Dates: start: 201704, end: 20170403
  2. VINCRISTINE (809A) [Suspect]
     Active Substance: VINCRISTINE
     Indication: B-CELL LYMPHOMA
     Dosage: 2 MG/21 DAILY
     Route: 042
     Dates: start: 201704, end: 20170403
  3. RITUXIMAB (2814A) [Concomitant]
     Active Substance: RITUXIMAB
     Indication: B-CELL LYMPHOMA
     Dates: end: 20170403
  4. CICLOFOSFAMIDA (120A) [Suspect]
     Active Substance: CYCLOPHOSPHAMIDE
     Indication: B-CELL LYMPHOMA
     Dosage: 1300 MG EVERY 21 DAYS
     Route: 042
     Dates: start: 201704, end: 20170403

REACTIONS (2)
  - Agranulocytosis [Recovered/Resolved]
  - Mucosal inflammation [Recovered/Resolved]

NARRATIVE: CASE EVENT DATE: 20170415
